FAERS Safety Report 6786148-5 (Version None)
Quarter: 2010Q2

REPORT INFORMATION
  Report Type: 
  Country: None (occurrence: None)
  Receive Date: 20100623
  Receipt Date: 20100617
  Transmission Date: 20101027
  Serious: Yes (Life-Threatening)
  Sender: FDA-Public Use
  Company Number: FR-SANOFI-AVENTIS-2010SA034951

PATIENT
  Age: 73 Year
  Sex: Female

DRUGS (19)
  1. TOPALGIC [Suspect]
     Route: 048
     Dates: start: 02100410, end: 20100427
  2. TOPALGIC [Suspect]
     Route: 048
     Dates: start: 20100428, end: 20100429
  3. LASIX [Suspect]
     Route: 048
     Dates: end: 20100429
  4. VALACYCLOVIR [Suspect]
     Indication: HERPES ZOSTER
     Route: 048
     Dates: start: 20100428, end: 20100429
  5. GABAPENTIN [Suspect]
     Route: 048
     Dates: start: 20100428, end: 20100429
  6. GLUCOPHAGE [Suspect]
     Indication: INSULIN-REQUIRING TYPE 2 DIABETES MELLITUS
     Route: 048
     Dates: end: 20100429
  7. ATENOLOL [Suspect]
     Route: 048
     Dates: end: 20100429
  8. TENSTATEN [Suspect]
     Route: 048
     Dates: end: 20100429
  9. ALLOPURINOL [Suspect]
     Indication: DRUG USE FOR UNKNOWN INDICATION
     Route: 048
     Dates: end: 20100429
  10. ACTONEL [Suspect]
     Indication: OSTEOPOROSIS
     Route: 048
     Dates: end: 20100429
  11. CALCIDOSE VITAMINE D [Suspect]
     Indication: OSTEOPOROSIS
     Route: 048
     Dates: end: 20100429
  12. FERROUS SULFATE TAB [Suspect]
     Indication: DRUG USE FOR UNKNOWN INDICATION
     Route: 048
     Dates: end: 20100429
  13. MINISINTROM [Suspect]
     Indication: DRUG USE FOR UNKNOWN INDICATION
     Route: 048
     Dates: end: 20100429
  14. HUMALOG [Concomitant]
     Indication: INSULIN-REQUIRING TYPE 2 DIABETES MELLITUS
  15. PERINDOPRIL [Concomitant]
     Indication: DRUG USE FOR UNKNOWN INDICATION
  16. LANTUS [Concomitant]
     Indication: INSULIN-REQUIRING TYPE 2 DIABETES MELLITUS
  17. HUMALOG MIX [Concomitant]
     Indication: INSULIN-REQUIRING TYPE 2 DIABETES MELLITUS
  18. INIPOMP [Concomitant]
     Indication: DRUG USE FOR UNKNOWN INDICATION
  19. PREDNISONE [Concomitant]
     Indication: DRUG USE FOR UNKNOWN INDICATION
     Route: 065

REACTIONS (4)
  - COMA [None]
  - PNEUMONIA ASPIRATION [None]
  - RESPIRATORY DISTRESS [None]
  - SHOCK [None]
